FAERS Safety Report 17645340 (Version 2)
Quarter: 2020Q2

REPORT INFORMATION
  Report Type: Spontaneous
  Country: AU (occurrence: AU)
  Receive Date: 20200408
  Receipt Date: 20200411
  Transmission Date: 20200713
  Serious: Yes (Life-Threatening, Hospitalization, Other)
  Sender: FDA-Public Use
  Company Number: AU-SA-2020SA077086

PATIENT
  Age: 67 Year
  Sex: Male

DRUGS (5)
  1. PERINDOPRIL [Concomitant]
     Active Substance: PERINDOPRIL
  2. NICORANDIL [Concomitant]
     Active Substance: NICORANDIL
  3. ATORVASTATIN [Concomitant]
     Active Substance: ATORVASTATIN
  4. CLOPIDOGREL BISULFATE. [Suspect]
     Active Substance: CLOPIDOGREL BISULFATE
     Indication: MYOCARDIAL ISCHAEMIA
  5. ASPIRIN [ACETYLSALICYLIC ACID] [Concomitant]
     Active Substance: ASPIRIN

REACTIONS (10)
  - Anti-insulin antibody increased [Recovered/Resolved]
  - Hyperplasia [Recovered/Resolved]
  - Insulin C-peptide increased [Recovered/Resolved]
  - Hypoglycaemia [Recovered/Resolved]
  - Insulin autoimmune syndrome [Recovered/Resolved]
  - Dizziness [Recovered/Resolved]
  - Fall [Unknown]
  - Blood proinsulin increased [Recovered/Resolved]
  - Confusional state [Recovered/Resolved]
  - Blood insulin increased [Recovered/Resolved]
